FAERS Safety Report 20178908 (Version 1)
Quarter: 2021Q4

REPORT INFORMATION
  Report Type: Spontaneous
  Country: JP (occurrence: JP)
  Receive Date: 20211214
  Receipt Date: 20211214
  Transmission Date: 20220303
  Serious: Yes (Other)
  Sender: FDA-Public Use
  Company Number: JP-KYOWAKIRIN-2021AKK020748

PATIENT
  Age: 83 Year
  Sex: Female

DRUGS (4)
  1. PEGFILGRASTIM [Suspect]
     Active Substance: PEGFILGRASTIM
     Indication: Colony stimulating factor therapy
     Dosage: 3.6 MG (CYCLE 2)
     Route: 058
  2. PEGFILGRASTIM [Suspect]
     Active Substance: PEGFILGRASTIM
     Dosage: 3.6 MG (CYCLE 3)
     Route: 058
  3. FILGRASTIM RECOMBINANT [Concomitant]
     Dosage: UNK (CYCLE 1)
     Route: 065
  4. FILGRASTIM RECOMBINANT [Concomitant]
     Dosage: UNK (CYCLE 2)
     Route: 065

REACTIONS (2)
  - Loss of consciousness [Recovered/Resolved]
  - Colony stimulating factor therapy [Unknown]
